APPROVED DRUG PRODUCT: ACETAZOLAMIDE
Active Ingredient: ACETAZOLAMIDE
Strength: 250MG
Dosage Form/Route: TABLET;ORAL
Application: A205530 | Product #002 | TE Code: AB
Applicant: HERITAGE PHARMA LABS INC
Approved: Oct 27, 2016 | RLD: No | RS: No | Type: RX